FAERS Safety Report 8798944 (Version 1)
Quarter: 2012Q4

REPORT INFORMATION
  Report Type: 
  Country: US (occurrence: US)
  Receive Date: 20120920
  Receipt Date: 20120920
  Transmission Date: 20130627
  Serious: No
  Sender: FDA-Public Use
  Company Number: US-B.I. PHARMACEUTICALS,INC./RIDGEFIELD-2012-BP-22745BP

PATIENT
  Age: 80 Year
  Sex: Female

DRUGS (7)
  1. SPIRIVA [Suspect]
     Dosage: 18 mcg
     Route: 055
     Dates: start: 201008
  2. SPIRIVA [Suspect]
     Route: 048
     Dates: start: 20120913, end: 20120913
  3. QVAR INHALER [Concomitant]
     Route: 055
     Dates: start: 2010
  4. NEXIUM [Concomitant]
     Route: 048
  5. PRO AIR [Concomitant]
     Route: 055
     Dates: start: 2010
  6. POTASSIUM [Concomitant]
     Route: 048
  7. AMLODIPINE [Concomitant]
     Indication: HYPERTENSION
     Route: 048

REACTIONS (1)
  - Incorrect route of drug administration [Recovered/Resolved]
